FAERS Safety Report 16184536 (Version 1)
Quarter: 2019Q2

REPORT INFORMATION
  Report Type: Spontaneous
  Country: US (occurrence: US)
  Receive Date: 20190410
  Receipt Date: 20190410
  Transmission Date: 20190711
  Serious: Yes (Hospitalization)
  Sender: FDA-Public Use
  Company Number: None

PATIENT
  Age: 31 Month
  Sex: Male
  Weight: 13.5 kg

DRUGS (1)
  1. VILAZODONE [Suspect]
     Active Substance: VILAZODONE
     Indication: PRODUCT USED FOR UNKNOWN INDICATION
     Dosage: ?          OTHER FREQUENCY:ONCE;?
     Route: 048

REACTIONS (3)
  - Loss of consciousness [None]
  - Seizure [None]
  - Wrong patient received product [None]

NARRATIVE: CASE EVENT DATE: 20190409
